FAERS Safety Report 20434919 (Version 2)
Quarter: 2022Q1

REPORT INFORMATION
  Report Type: Report from Study
  Country: GB (occurrence: GB)
  Receive Date: 20220206
  Receipt Date: 20220209
  Transmission Date: 20220423
  Serious: Yes (Hospitalization)
  Sender: FDA-Public Use
  Company Number: GB-NOVARTISPH-NVSC2022GB023401

PATIENT
  Sex: Female

DRUGS (1)
  1. HYRIMOZ [Suspect]
     Active Substance: ADALIMUMAB-ADAZ
     Indication: Rheumatoid arthritis
     Dosage: 1 DOSAGE FORM (40MG/0.8 ML FORTNIGHTLY, AS DIRECTED)
     Route: 065
     Dates: start: 20210910

REACTIONS (2)
  - Urinary tract infection [Unknown]
  - Migraine [Unknown]
